FAERS Safety Report 18721385 (Version 1)
Quarter: 2021Q1

REPORT INFORMATION
  Report Type: Report from Study
  Country: MX (occurrence: MX)
  Receive Date: 20210109
  Receipt Date: 20210109
  Transmission Date: 20210419
  Serious: Yes (Other)
  Sender: FDA-Public Use
  Company Number: NVSC2020MX168678

PATIENT
  Sex: Female
  Weight: 62 kg

DRUGS (1)
  1. TEGRETOL [Suspect]
     Active Substance: CARBAMAZEPINE
     Indication: EPILEPSY
     Dosage: 200 MG, BID
     Route: 048

REACTIONS (4)
  - Stress [Unknown]
  - Malaise [Unknown]
  - Visual impairment [Unknown]
  - Epilepsy [Unknown]
